FAERS Safety Report 7372949-1 (Version None)
Quarter: 2011Q1

REPORT INFORMATION
  Report Type: 
  Country: None (occurrence: None)
  Receive Date: 20110324
  Receipt Date: 20110318
  Transmission Date: 20110831
  Serious: No
  Sender: FDA-Public Use
  Company Number: US-BAYER-2011-024471

PATIENT
  Sex: Female

DRUGS (5)
  1. YAZ [Suspect]
     Indication: ACNE
     Route: 048
  2. YAZ [Suspect]
     Indication: ORAL CONTRACEPTION
  3. OCELLA [Suspect]
     Indication: ACNE
     Route: 048
  4. YASMIN [Suspect]
     Indication: ACNE
     Route: 048
  5. YASMIN [Suspect]
     Indication: ORAL CONTRACEPTION

REACTIONS (2)
  - INJURY [None]
  - PAIN [None]
